FAERS Safety Report 23937035 (Version 1)
Quarter: 2024Q2

REPORT INFORMATION
  Report Type: Spontaneous
  Country: CZ (occurrence: CZ)
  Receive Date: 20240604
  Receipt Date: 20240604
  Transmission Date: 20240716
  Serious: Yes (Other)
  Sender: FDA-Public Use
  Company Number: CZ-BRISTOL-MYERS SQUIBB COMPANY-2024-085395

PATIENT
  Sex: Male

DRUGS (4)
  1. NIVOLUMAB [Suspect]
     Active Substance: NIVOLUMAB
     Indication: B-cell lymphoma
  2. NIVOLUMAB [Suspect]
     Active Substance: NIVOLUMAB
  3. NIVOLUMAB [Suspect]
     Active Substance: NIVOLUMAB
  4. IPILIMUMAB [Suspect]
     Active Substance: IPILIMUMAB
     Indication: B-cell lymphoma

REACTIONS (3)
  - Pulmonary toxicity [Recovering/Resolving]
  - Hepatotoxicity [Unknown]
  - Off label use [Unknown]
